FAERS Safety Report 8402830-8 (Version None)
Quarter: 2012Q2

REPORT INFORMATION
  Report Type: 
  Country: None (occurrence: None)
  Receive Date: 20120601
  Receipt Date: 20120521
  Transmission Date: 20120825
  Serious: Yes (Congenital Anomaly, Other)
  Sender: FDA-Public Use
  Company Number: US-PFIZER INC-2012015229

PATIENT
  Sex: Female

DRUGS (1)
  1. EFFEXOR [Suspect]
     Dosage: UNK
     Route: 064

REACTIONS (2)
  - TACHYCARDIA FOETAL [None]
  - MATERNAL EXPOSURE TIMING UNSPECIFIED [None]
